FAERS Safety Report 9982875 (Version 1)
Quarter: 2014Q1

REPORT INFORMATION
  Report Type: Report from Study
  Country: US (occurrence: US)
  Receive Date: 20140307
  Receipt Date: 20140307
  Transmission Date: 20141002
  Serious: No
  Sender: FDA-Public Use
  Company Number: US-ABBVIE-13P-163-1177090-00

PATIENT
  Age: 62 Year
  Sex: Female
  Weight: 99.88 kg

DRUGS (5)
  1. HUMIRA [Suspect]
     Indication: PSORIATIC ARTHROPATHY
     Dates: start: 20131203
  2. PREDNISONE [Concomitant]
     Indication: PSORIATIC ARTHROPATHY
  3. SYNTHROID [Concomitant]
     Indication: HYPOTHYROIDISM
  4. AMITRIPTYLINE [Concomitant]
     Indication: DEPRESSION
  5. CELEBREX [Concomitant]
     Indication: PSORIATIC ARTHROPATHY

REACTIONS (1)
  - Headache [Recovered/Resolved]
